FAERS Safety Report 24156492 (Version 2)
Quarter: 2024Q3

REPORT INFORMATION
  Report Type: Spontaneous
  Country: TN (occurrence: TN)
  Receive Date: 20240731
  Receipt Date: 20240904
  Transmission Date: 20241017
  Serious: Yes (Other)
  Sender: HIKMA
  Company Number: TN-HIKMA PHARMACEUTICALS-TN-H14001-24-06996

PATIENT

DRUGS (2)
  1. LETROZOLE [Suspect]
     Active Substance: LETROZOLE
     Indication: Breast cancer
     Dosage: 2.5 MILLIGRAM, QD
     Route: 048
     Dates: start: 202210, end: 202302
  2. KISQALI [Concomitant]
     Active Substance: RIBOCICLIB
     Indication: HER2 negative breast cancer
     Dosage: 600MG/DAY - 21/28 DAYS
     Route: 065

REACTIONS (2)
  - Drug ineffective [Unknown]
  - Disease progression [Recovering/Resolving]

NARRATIVE: CASE EVENT DATE: 20230222
